FAERS Safety Report 4589208-2 (Version None)
Quarter: 2005Q1

REPORT INFORMATION
  Report Type: 
  Country: None (occurrence: None)
  Receive Date: 20050216
  Receipt Date: 20050216
  Transmission Date: 20050727
  Serious: Yes (Disabling)
  Sender: FDA-Public Use
  Company Number: None

PATIENT
  Age: 59 Year
  Sex: Female
  Weight: 67.586 kg

DRUGS (15)
  1. TOPAMAX [Suspect]
     Indication: MOOD SWINGS
     Dosage: 100MG, 2TIMES, ORAL 047
     Route: 048
  2. ACCOLATE [Concomitant]
  3. CYTOMEL [Concomitant]
  4. FLEXERIL [Concomitant]
  5. FOLATE [Concomitant]
  6. HYDROCHLOROTHIAZIDE [Concomitant]
  7. IMDUR [Concomitant]
  8. MOBIC [Concomitant]
  9. PREVACID [Concomitant]
  10. SYNTHROID [Concomitant]
  11. TRAZODONE HCL [Concomitant]
  12. ULTRAM [Concomitant]
  13. WELLBUTRIN [Concomitant]
  14. FOLATE [Concomitant]
  15. VITAMIN B COMPLEX CAP [Concomitant]

REACTIONS (5)
  - DIFFICULTY IN WALKING [None]
  - DYSSTASIA [None]
  - NEUROPATHY PERIPHERAL [None]
  - PAIN IN EXTREMITY [None]
  - PARAESTHESIA [None]
